FAERS Safety Report 8263930-9 (Version None)
Quarter: 2012Q2

REPORT INFORMATION
  Report Type: 
  Country: None (occurrence: None)
  Receive Date: 20120406
  Receipt Date: 20120323
  Transmission Date: 20120825
  Serious: Yes (Hospitalization)
  Sender: FDA-Public Use
  Company Number: FR-AMGEN-FRASP2012013852

PATIENT
  Age: 62 Year
  Sex: Female

DRUGS (9)
  1. ASPIRIN [Concomitant]
     Dosage: UNK
     Route: 048
  2. ATACAND [Concomitant]
     Dosage: UNK
     Route: 048
  3. ALLOPURINOL [Concomitant]
     Dosage: UNK
  4. REPAGLINIDE [Concomitant]
     Indication: DIABETES MELLITUS
     Dosage: UNK
     Route: 048
  5. LASIX [Concomitant]
     Indication: HYPERTENSION
     Dosage: UNK
     Route: 048
  6. ATORVASTATIN [Concomitant]
     Dosage: UNK
  7. DAFLON                             /00426001/ [Concomitant]
     Dosage: UNK
  8. ENBREL [Suspect]
     Indication: PSORIASIS
     Dosage: 50 MG, QWK
     Dates: start: 20100101, end: 20110701
  9. MEDIATENSYL                        /00631801/ [Concomitant]
     Dosage: UNK
     Route: 048

REACTIONS (1)
  - POSTOPERATIVE ABSCESS [None]
